FAERS Safety Report 18829381 (Version 1)
Quarter: 2021Q1

REPORT INFORMATION
  Report Type: Spontaneous
  Country: US (occurrence: US)
  Receive Date: 20210202
  Receipt Date: 20210202
  Transmission Date: 20210419
  Serious: Yes (Hospitalization)
  Sender: FDA-Public Use
  Company Number: None

PATIENT
  Age: 60 Year
  Sex: Female

DRUGS (4)
  1. LORATADINE. [Concomitant]
     Active Substance: LORATADINE
  2. CARVEDILOL. [Concomitant]
     Active Substance: CARVEDILOL
  3. LOSARTAN. [Concomitant]
     Active Substance: LOSARTAN
  4. CAPECITABINE TAB 500MG [Suspect]
     Active Substance: CAPECITABINE
     Indication: NEOPLASM MALIGNANT
     Route: 048
     Dates: start: 20201106

REACTIONS (1)
  - Lung disorder [None]

NARRATIVE: CASE EVENT DATE: 20210127
